FAERS Safety Report 24233271 (Version 1)
Quarter: 2024Q3

REPORT INFORMATION
  Report Type: Spontaneous
  Country: US (occurrence: US)
  Receive Date: 20240821
  Receipt Date: 20240821
  Transmission Date: 20241016
  Serious: No
  Sender: SANOFI AVENTIS
  Company Number: US-SANOFI-02178917

PATIENT
  Age: 61 Year
  Sex: Male

DRUGS (1)
  1. LOVENOX [Suspect]
     Active Substance: ENOXAPARIN SODIUM
     Indication: Klinefelter^s syndrome
     Dosage: 150 MG, QD (150 MG QD AND DRUG TREATMENT DURATION:SINCE 2012)
     Dates: start: 2012

REACTIONS (1)
  - Product use in unapproved indication [Unknown]
